FAERS Safety Report 21077876 (Version 2)
Quarter: 2022Q3

REPORT INFORMATION
  Report Type: Spontaneous
  Country: US (occurrence: US)
  Receive Date: 20220713
  Receipt Date: 20220928
  Transmission Date: 20221027
  Serious: No
  Sender: FDA-Public Use
  Company Number: US-TAKEDA-2022TUS047045

PATIENT
  Age: 66 Year
  Sex: Female
  Weight: 89.4 kg

DRUGS (1)
  1. GAMMAGARD LIQUID [Suspect]
     Active Substance: HUMAN IMMUNOGLOBULIN G
     Indication: Myasthenia gravis
     Dosage: 45 GRAM, Q4WEEKS
     Route: 042
     Dates: start: 20210323, end: 20210420

REACTIONS (5)
  - Muscle twitching [Unknown]
  - Arthralgia [Unknown]
  - Muscle spasms [Unknown]
  - Vitreous floaters [Unknown]
  - Off label use [Unknown]

NARRATIVE: CASE EVENT DATE: 20210323
